FAERS Safety Report 8386676-5 (Version None)
Quarter: 2012Q2

REPORT INFORMATION
  Report Type: 
  Country: None (occurrence: None)
  Receive Date: 20120525
  Receipt Date: 20120515
  Transmission Date: 20120825
  Serious: No
  Sender: FDA-Public Use
  Company Number: US-ROXANE LABORATORIES, INC.-2012-RO-01266RO

PATIENT
  Age: 60 Year
  Sex: Male

DRUGS (2)
  1. METHADONE HCL [Suspect]
     Indication: ANKYLOSING SPONDYLITIS
     Dosage: 80 MG
     Route: 048
  2. OPANA [Concomitant]
     Indication: ANKYLOSING SPONDYLITIS

REACTIONS (3)
  - FATIGUE [None]
  - SOMNOLENCE [None]
  - ASTHENIA [None]
